FAERS Safety Report 4525094-4 (Version None)
Quarter: 2004Q4

REPORT INFORMATION
  Report Type: 
  Country: None (occurrence: None)
  Receive Date: 20041117
  Receipt Date: 20031118
  Transmission Date: 20050328
  Serious: Yes (Other)
  Sender: FDA-Public Use
  Company Number: C2003-3076.01

PATIENT
  Age: 78 Year
  Sex: Male

DRUGS (7)
  1. CLOZAPINE [Suspect]
     Indication: SCHIZOPHRENIA
     Dosage: 150MG QD, THEN 100MG, ORAL
     Route: 048
     Dates: start: 20011022, end: 20031118
  2. FLUOXETINE [Concomitant]
  3. RANITIDINE [Concomitant]
  4. DOXEPIN HCL [Concomitant]
  5. BUFFERED ASPIRIN [Concomitant]
  6. VITAMIN E [Concomitant]
  7. DIPHENHYDRAMINE [Concomitant]

REACTIONS (1)
  - LEUKOPENIA [None]
